FAERS Safety Report 7657988-5 (Version None)
Quarter: 2011Q3

REPORT INFORMATION
  Report Type: 
  Country: None (occurrence: None)
  Receive Date: 20110805
  Receipt Date: 20110722
  Transmission Date: 20111222
  Serious: Yes (Hospitalization, Disabling)
  Sender: FDA-Public Use
  Company Number: GB-RANBAXY-2011R1-46278

PATIENT
  Age: 76 Year
  Sex: Female

DRUGS (2)
  1. CIPROFLAXACIN [Suspect]
     Indication: LOWER RESPIRATORY TRACT INFECTION
     Dosage: 800 MG, UNK
     Route: 065
     Dates: start: 20070501, end: 20070101
  2. PREDNISOLONE [Suspect]
     Indication: LOWER RESPIRATORY TRACT INFECTION
     Dosage: UNK
     Route: 065
     Dates: start: 20070501

REACTIONS (3)
  - INFECTIVE EXACERBATION OF BRONCHIECTASIS [None]
  - TENDON RUPTURE [None]
  - GASTROENTERITIS VIRAL [None]
